FAERS Safety Report 9579957 (Version 1)
Quarter: 2013Q3

REPORT INFORMATION
  Report Type: Spontaneous
  Country: US (occurrence: None)
  Receive Date: 20130916
  Receipt Date: 20130916
  Transmission Date: 20140515
  Serious: Yes (Other)
  Sender: FDA-Public Use
  Company Number: JPI-P-025771

PATIENT
  Age: 37 Year
  Sex: Female

DRUGS (7)
  1. XYREM (500 MILLIGRAM/MILLILITERS, SOLUTION) (SODIUM OXYBATE) [Suspect]
     Indication: SOMNOLENCE
     Route: 048
     Dates: start: 201005
  2. ESCITALOPRAM OXALATE [Concomitant]
  3. ARMOUR THYROID EXTRACT [Concomitant]
  4. AMPHETAMINE, DEXTROAMPHETAMINE MIXED SALTS PSYCHOSTIMULANTS AND NOOTROPICS [Concomitant]
  5. ARIPIPRAZOLE [Concomitant]
  6. DIAZEPAM [Concomitant]
  7. DOXEPIN [Concomitant]

REACTIONS (1)
  - Unresponsive to stimuli [None]
